FAERS Safety Report 23784441 (Version 1)
Quarter: 2024Q2

REPORT INFORMATION
  Report Type: Spontaneous
  Country: US (occurrence: None)
  Receive Date: 20240425
  Receipt Date: 20240425
  Transmission Date: 20240715
  Serious: Yes (Hospitalization)
  Sender: FDA-Public Use
  Company Number: None

PATIENT
  Age: 65 Year
  Sex: Male
  Weight: 76.5 kg

DRUGS (9)
  1. OZEMPIC [Suspect]
     Active Substance: SEMAGLUTIDE
  2. LISINOPRIL [Concomitant]
     Active Substance: LISINOPRIL
  3. resuvostatin [Concomitant]
  4. LANTUS [Concomitant]
  5. NOVOLOG [Concomitant]
  6. DEVICE [Concomitant]
     Active Substance: DEVICE
  7. b vitamin [Concomitant]
  8. D3 VITAMIN [Concomitant]
  9. allergy [Concomitant]

REACTIONS (4)
  - Nausea [None]
  - Diarrhoea [None]
  - Loss of consciousness [None]
  - Dehydration [None]

NARRATIVE: CASE EVENT DATE: 20240414
